FAERS Safety Report 8076366-0 (Version None)
Quarter: 2012Q1

REPORT INFORMATION
  Report Type: 
  Country: None (occurrence: None)
  Receive Date: 20120127
  Receipt Date: 20120113
  Transmission Date: 20120608
  Serious: Yes (Death, Other)
  Sender: FDA-Public Use
  Company Number: GR-ROCHE-1033835

PATIENT
  Age: 57 Year
  Sex: Female

DRUGS (1)
  1. METALYSE [Suspect]
     Indication: ACUTE MYOCARDIAL INFARCTION

REACTIONS (5)
  - ANURIA [None]
  - INTRAPERICARDIAL THROMBOSIS [None]
  - PERICARDIAL HAEMORRHAGE [None]
  - MULTI-ORGAN FAILURE [None]
  - ABDOMINAL PAIN [None]
